FAERS Safety Report 6962825-8 (Version None)
Quarter: 2010Q3

REPORT INFORMATION
  Report Type: 
  Country: None (occurrence: None)
  Receive Date: 20100902
  Receipt Date: 20100823
  Transmission Date: 20110219
  Serious: Yes (Other)
  Sender: FDA-Public Use
  Company Number: JP-ALLERGAN-0907850US

PATIENT
  Age: 36 Year
  Sex: Female

DRUGS (15)
  1. BOTOX INJECTION 100 [Suspect]
     Indication: TORTICOLLIS
     Dosage: 60 UNITS, SINGLE
     Route: 030
     Dates: start: 20030810, end: 20030810
  2. BOTOX INJECTION 100 [Suspect]
     Dosage: 60 UNITS, SINGLE
     Route: 030
     Dates: start: 20030815, end: 20030815
  3. BOTOX INJECTION 100 [Suspect]
     Dosage: 80 UNITS, SINGLE
     Route: 030
     Dates: start: 20031024, end: 20031024
  4. BOTOX INJECTION 100 [Suspect]
     Dosage: 90 UNITS, SINGLE
     Route: 030
     Dates: start: 20040128, end: 20040128
  5. BOTOX INJECTION 100 [Suspect]
     Dosage: 90 UNITS, SINGLE
     Route: 030
     Dates: start: 20040428, end: 20040428
  6. BOTOX INJECTION 100 [Suspect]
     Dosage: 100 UNITS, SINGLE
     Route: 030
     Dates: start: 20040805, end: 20040805
  7. BOTOX INJECTION 100 [Suspect]
     Dosage: UNK UNITS, SINGLE
     Route: 030
     Dates: start: 20080501, end: 20080501
  8. CLONAZEPAM [Concomitant]
     Indication: HYPOTONIA
     Dosage: UNK
     Route: 048
     Dates: start: 19981201
  9. DANTROLENE SODIUM [Concomitant]
     Indication: HYPOTONIA
     Dosage: UNK MG, TID
     Route: 048
     Dates: start: 19981201
  10. ETIZOLAM [Concomitant]
     Indication: HYPOTONIA
     Dosage: 1 MG, QD
     Route: 048
     Dates: start: 20010801
  11. NITRAZEPAM [Concomitant]
     Indication: INSOMNIA
     Dosage: 5 MG, QD
     Route: 048
     Dates: start: 20001101
  12. FLUVOXAMINE MALEATE [Concomitant]
     Indication: DEPRESSION
     Dosage: 50 MG, BID
     Route: 048
     Dates: start: 20070101
  13. ZOLPIDEM TARTRATE [Concomitant]
     Indication: INSOMNIA
     Dosage: 5 MG, QD
     Route: 048
     Dates: start: 20070501
  14. LIORESAL [Concomitant]
     Indication: CEREBRAL PALSY
     Dosage: 10 MG, QD
     Route: 048
     Dates: start: 20030811
  15. TIZANIDINE HYDROCHLORIDE [Concomitant]
     Indication: CEREBRAL PALSY
     Dosage: 2 MG, QD
     Route: 048
     Dates: start: 20030811

REACTIONS (4)
  - DYSPHAGIA [None]
  - EATING DISORDER [None]
  - HYPOPHAGIA [None]
  - WHEEZING [None]
